FAERS Safety Report 12212413 (Version 1)
Quarter: 2016Q1

REPORT INFORMATION
  Report Type: Spontaneous
  Country: FR (occurrence: FR)
  Receive Date: 20160326
  Receipt Date: 20160326
  Transmission Date: 20160526
  Serious: Yes (Other)
  Sender: FDA-Public Use
  Company Number: FR-ACCORD-039090

PATIENT
  Age: 74 Year
  Sex: Female

DRUGS (3)
  1. LEVOFOLINATE CALCIUM ZENTIVA [Suspect]
     Active Substance: LEVOLEUCOVORIN CALCIUM
     Indication: CHEMOTHERAPY TOXICITY ATTENUATION
     Dosage: 940 MG AS CUMULATIVE DOSE IN ONE CYCLE
     Route: 042
     Dates: start: 20151211, end: 20160126
  2. FLUOROURACIL ACCORD [Suspect]
     Active Substance: FLUOROURACIL
     Indication: RECTAL CANCER RECURRENT
     Dosage: STRENGTH: 50 MG/ML, ?13160 MG AS CUMULATIVE DOSE IN ONE CYCLE
     Route: 042
     Dates: start: 20151211, end: 20160126
  3. IRINOTECAN MYLAN [Suspect]
     Active Substance: IRINOTECAN
     Indication: RECTAL CANCER RECURRENT
     Dosage: STRENGTH: 20 MG/ML, ?846 MG AS CUMULATIVE DOSE IN ONE CYCLE
     Route: 042
     Dates: start: 20151211, end: 20160126

REACTIONS (1)
  - Osteitis [Not Recovered/Not Resolved]

NARRATIVE: CASE EVENT DATE: 20160211
